FAERS Safety Report 6986197-8 (Version None)
Quarter: 2010Q3

REPORT INFORMATION
  Report Type: 
  Country: None (occurrence: None)
  Receive Date: 20100915
  Receipt Date: 20090601
  Transmission Date: 20110219
  Serious: No
  Sender: FDA-Public Use
  Company Number: US-WYE-H09566209

PATIENT
  Sex: Male
  Weight: 99.88 kg

DRUGS (4)
  1. PRISTIQ [Suspect]
     Indication: DEPRESSION
     Route: 048
     Dates: start: 20090523
  2. MELOXICAM [Concomitant]
  3. PRAVASTATIN [Concomitant]
  4. PROVIGIL [Concomitant]

REACTIONS (5)
  - DECREASED APPETITE [None]
  - ENERGY INCREASED [None]
  - IRRITABILITY [None]
  - SENSORY DISTURBANCE [None]
  - TENSION [None]
